FAERS Safety Report 8167188-0 (Version None)
Quarter: 2012Q1

REPORT INFORMATION
  Report Type: 
  Country: None (occurrence: None)
  Receive Date: 20120221
  Receipt Date: 20120213
  Transmission Date: 20120608
  Serious: Yes (Hospitalization, Other)
  Sender: FDA-Public Use
  Company Number: 2012MA002016

PATIENT
  Age: 48 Year
  Sex: Male

DRUGS (2)
  1. MINOXIDIL EXTRA STRENGTH (FOR MEN) [Suspect]
     Dosage: X1;PO
     Route: 048
  2. ATENOLOL [Concomitant]

REACTIONS (8)
  - HYPERTENSION [None]
  - HEART RATE INCREASED [None]
  - SYNCOPE [None]
  - TOXICITY TO VARIOUS AGENTS [None]
  - NO THERAPEUTIC RESPONSE [None]
  - INCORRECT ROUTE OF DRUG ADMINISTRATION [None]
  - DIZZINESS [None]
  - HYPOTENSION [None]
